FAERS Safety Report 8792132 (Version 1)
Quarter: 2012Q4

REPORT INFORMATION
  Report Type: 
  Country: US (occurrence: US)
  Receive Date: 20120918
  Receipt Date: 20120918
  Transmission Date: 20130627
  Serious: Yes (Hospitalization)
  Sender: FDA-Public Use
  Company Number: US-MYLANLABS-2012S1018781

PATIENT
  Age: 9 None
  Sex: Male

DRUGS (2)
  1. CIPROFLOXACIN [Suspect]
     Indication: BORDETELLA INFECTION
     Route: 048
  2. CIPROFLOXACIN [Suspect]
     Indication: BORDETELLA INFECTION
     Dosage: 750 mg/day
     Route: 048

REACTIONS (2)
  - Pathogen resistance [Unknown]
  - Bordetella infection [Recovered/Resolved]
